FAERS Safety Report 26211372 (Version 1)
Quarter: 2025Q4

REPORT INFORMATION
  Report Type: Spontaneous
  Country: US (occurrence: US)
  Receive Date: 20251230
  Receipt Date: 20251230
  Transmission Date: 20260118
  Serious: No
  Sender: LUPIN
  Company Number: US-LUPIN PHARMACEUTICALS INC.-2025-11650

PATIENT

DRUGS (1)
  1. SERTRALINE HYDROCHLORIDE [Suspect]
     Active Substance: SERTRALINE HYDROCHLORIDE
     Indication: Anxiety
     Dosage: UNK
     Route: 065

REACTIONS (7)
  - Electric shock sensation [Unknown]
  - Withdrawal syndrome [Unknown]
  - Nausea [Unknown]
  - Disturbance in attention [Unknown]
  - Headache [Unknown]
  - Gastrointestinal disorder [Unknown]
  - Anxiety [Unknown]
